FAERS Safety Report 23311575 (Version 1)
Quarter: 2023Q4

REPORT INFORMATION
  Report Type: Spontaneous
  Country: SA (occurrence: SA)
  Receive Date: 20231219
  Receipt Date: 20231219
  Transmission Date: 20240110
  Serious: Yes (Hospitalization, Other)
  Sender: FDA-Public Use
  Company Number: SA-IPCA LABORATORIES LIMITED-IPC-2023-SA-002229

PATIENT

DRUGS (9)
  1. PROPRANOLOL [Suspect]
     Active Substance: PROPRANOLOL HYDROCHLORIDE
     Indication: Infantile haemangioma
     Dosage: 3.15 MILLIGRAM, QD
     Route: 048
  2. PROPRANOLOL [Suspect]
     Active Substance: PROPRANOLOL HYDROCHLORIDE
     Dosage: PRODUCT CONCENTRATION WAS 40 MG/5 ML
     Route: 048
  3. PROPRANOLOL [Suspect]
     Active Substance: PROPRANOLOL HYDROCHLORIDE
     Dosage: (52 MG 6.5 ML TWICE DAILY)
     Route: 065
  4. PROPRANOLOL [Suspect]
     Active Substance: PROPRANOLOL HYDROCHLORIDE
     Dosage: (24 MG/3 ML TWICE DAILY)
     Route: 065
  5. PROPRANOLOL [Suspect]
     Active Substance: PROPRANOLOL HYDROCHLORIDE
     Dosage: (12 MG/1.5 ML TWICE DAILY)
     Route: 065
  6. PROPRANOLOL [Suspect]
     Active Substance: PROPRANOLOL HYDROCHLORIDE
     Dosage: (6.5 MG/0.8 ML TWICE DAILY)
     Route: 065
  7. TIMOLOL [Concomitant]
     Active Substance: TIMOLOL
     Indication: Skin lesion
     Dosage: 1 DROP, TID
     Route: 047
  8. TIMOLOL [Concomitant]
     Active Substance: TIMOLOL
     Dosage: 1 DROP, TID
     Route: 047
  9. TIMOLOL [Concomitant]
     Active Substance: TIMOLOL
     Dosage: 1 DROP, TID
     Route: 047

REACTIONS (2)
  - Somnolence [Recovered/Resolved]
  - Accidental overdose [Unknown]
